FAERS Safety Report 15634566 (Version 1)
Quarter: 2018Q4

REPORT INFORMATION
  Report Type: Report from Study
  Country: JP (occurrence: JP)
  Receive Date: 20181119
  Receipt Date: 20181119
  Transmission Date: 20190205
  Serious: Yes (Hospitalization)
  Sender: FDA-Public Use
  Company Number: JP-NEUROCRINE BIOSCIENCES INC.-2018NBI02523

PATIENT
  Age: 76 Year
  Sex: Female
  Weight: 61 kg

DRUGS (11)
  1. LONASEN [Concomitant]
     Active Substance: BLONANSERIN
     Indication: DEPRESSION
     Route: 048
     Dates: start: 20180406
  2. TELMISARTAN. [Concomitant]
     Active Substance: TELMISARTAN
     Indication: HYPERTENSION
     Route: 048
  3. MT-5199 (VALBENAZINE) [Suspect]
     Active Substance: VALBENAZINE
     Indication: TARDIVE DYSKINESIA
     Dosage: UNKNOWN
     Route: 048
     Dates: start: 20180602, end: 20180807
  4. FLUNITRAZEPAM [Concomitant]
     Active Substance: FLUNITRAZEPAM
     Indication: DEPRESSION
     Route: 048
  5. AMOBANTES [Concomitant]
     Indication: DEPRESSION
     Route: 048
  6. MAGNESIUM OXIDE. [Concomitant]
     Active Substance: MAGNESIUM OXIDE
     Indication: CONSTIPATION
     Route: 048
  7. ACTONEL [Concomitant]
     Active Substance: RISEDRONATE SODIUM
     Indication: OSTEOPOROSIS
     Dosage: ONCE A MONTH, 75MG
     Route: 048
  8. LORAZEPAM. [Concomitant]
     Active Substance: LORAZEPAM
     Indication: DEPRESSION
     Route: 048
     Dates: start: 20180406
  9. MOSAPRIDE CITRATE HYDRATE [Concomitant]
     Active Substance: MOSAPRIDE CITRATE DIHYDRATE
     Indication: CONSTIPATION
     Route: 048
  10. SODIUM PICOSULFATE HYDRATE [Concomitant]
     Active Substance: SODIUM PICOSULFATE
     Indication: CONSTIPATION
     Route: 048
     Dates: start: 20180712
  11. EDIROL [Concomitant]
     Active Substance: ELDECALCITOL
     Indication: OSTEOPOROSIS
     Route: 048

REACTIONS (2)
  - Movement disorder [Recovering/Resolving]
  - Disturbance in attention [Recovering/Resolving]

NARRATIVE: CASE EVENT DATE: 20180803
